FAERS Safety Report 11440312 (Version 1)
Quarter: 2015Q3

REPORT INFORMATION
  Report Type: Spontaneous
  Country: US (occurrence: US)
  Receive Date: 20150901
  Receipt Date: 20150901
  Transmission Date: 20151125
  Serious: No
  Sender: FDA-Public Use
  Company Number: US-ROCHE-1071540

PATIENT
  Sex: Male

DRUGS (3)
  1. PEGASYS [Suspect]
     Active Substance: PEGINTERFERON ALFA-2A
     Indication: HEPATITIS C
     Dosage: PROCLICK
     Route: 058
     Dates: start: 20120521
  2. RIBAVIRIN. [Suspect]
     Active Substance: RIBAVIRIN
     Dosage: ZYDUS BRAND
     Route: 065
  3. RIBAVIRIN. [Suspect]
     Active Substance: RIBAVIRIN
     Indication: HEPATITIS C
     Dosage: IN DIVIDED DOSES 600/400
     Route: 048
     Dates: start: 20120522

REACTIONS (9)
  - Nausea [Unknown]
  - Drug administration error [Unknown]
  - Middle insomnia [Unknown]
  - Anger [Unknown]
  - Anaemia [Unknown]
  - Weight decreased [Unknown]
  - Decreased appetite [Unknown]
  - Product quality issue [Unknown]
  - Fatigue [Unknown]
